FAERS Safety Report 25915834 (Version 5)
Quarter: 2025Q4

REPORT INFORMATION
  Report Type: Report from Study
  Country: EU (occurrence: EU)
  Receive Date: 20251013
  Receipt Date: 20251217
  Transmission Date: 20260117
  Serious: Yes (Hospitalization)
  Sender: SANOFI AVENTIS
  Company Number: EU-SA-SAC20231108001501

PATIENT
  Age: 2 Year
  Sex: Male

DRUGS (2)
  1. IMIGLUCERASE [Suspect]
     Active Substance: IMIGLUCERASE
     Indication: Gaucher^s disease
     Dosage: 3 DF, QOW(3 VIALS EVERY 14 DAYS)
     Route: 041
     Dates: start: 20230420, end: 20231019
  2. IMIGLUCERASE [Suspect]
     Active Substance: IMIGLUCERASE
     Dosage: 3 DF, QOW(3 VIALS EVERY 14 DAYS)
     Route: 041

REACTIONS (3)
  - Hospitalisation [Recovered/Resolved]
  - Influenza like illness [Recovered/Resolved]
  - Pyrexia [Recovered/Resolved]

NARRATIVE: CASE EVENT DATE: 20231101
